FAERS Safety Report 12580119 (Version 3)
Quarter: 2016Q3

REPORT INFORMATION
  Report Type: Spontaneous
  Country: JP (occurrence: JP)
  Receive Date: 20160721
  Receipt Date: 20160914
  Transmission Date: 20161109
  Serious: Yes (Hospitalization, Other)
  Sender: FDA-Public Use
  Company Number: JP-ASTRAZENECA-2016SE78156

PATIENT
  Age: 53 Year
  Sex: Female

DRUGS (13)
  1. QUETIAPINE. [Suspect]
     Active Substance: QUETIAPINE
     Indication: PRODUCT USED FOR UNKNOWN INDICATION
     Route: 048
     Dates: start: 2013, end: 2013
  2. RISPERIDONE. [Suspect]
     Active Substance: RISPERIDONE
     Indication: PRODUCT USED FOR UNKNOWN INDICATION
     Route: 065
     Dates: start: 2013, end: 2013
  3. BIPERIDEN [Suspect]
     Active Substance: BIPERIDEN
     Indication: PARKINSONISM
     Route: 048
     Dates: start: 2013, end: 2013
  4. TIAPRIDE [Suspect]
     Active Substance: TIAPRIDE
     Indication: DEMENTIA WITH LEWY BODIES
     Dosage: 50-150 MG ONCE DAILY
     Route: 065
  5. BIPERIDEN [Suspect]
     Active Substance: BIPERIDEN
     Indication: PARKINSONISM
     Route: 048
     Dates: end: 2015
  6. LEVODOPA-CARBIDOPA [Concomitant]
     Active Substance: CARBIDOPA\LEVODOPA
     Route: 048
     Dates: start: 201309, end: 2015
  7. YOKUKANSAN [Concomitant]
     Active Substance: HERBALS
     Route: 048
  8. BIPERIDEN [Suspect]
     Active Substance: BIPERIDEN
     Indication: PARKINSONISM
     Route: 048
     Dates: start: 2013, end: 2013
  9. CLONAZEPAM. [Concomitant]
     Active Substance: CLONAZEPAM
     Route: 048
  10. OLANZAPINE. [Suspect]
     Active Substance: OLANZAPINE
     Indication: PRODUCT USED FOR UNKNOWN INDICATION
     Dosage: 5 TO 10 MG DAILY
     Route: 065
     Dates: start: 2013, end: 2013
  11. OLANZAPINE. [Suspect]
     Active Substance: OLANZAPINE
     Indication: PRODUCT USED FOR UNKNOWN INDICATION
     Dosage: 5 TO 10 MG DAILY
     Route: 065
     Dates: start: 2013, end: 2013
  12. BIPERIDEN [Suspect]
     Active Substance: BIPERIDEN
     Indication: PARKINSONISM
     Route: 048
     Dates: start: 2013, end: 2013
  13. BROTIZOLAM [Concomitant]
     Active Substance: BROTIZOLAM
     Route: 048

REACTIONS (2)
  - Neuroleptic malignant syndrome [Unknown]
  - Drug hypersensitivity [Unknown]

NARRATIVE: CASE EVENT DATE: 2015
